FAERS Safety Report 5142957-X (Version None)
Quarter: 2006Q4

REPORT INFORMATION
  Report Type: 
  Country: None (occurrence: None)
  Receive Date: 20061103
  Receipt Date: 20061025
  Transmission Date: 20070319
  Serious: Yes (Other)
  Sender: FDA-Public Use
  Company Number: US-JNJFOC-20061006034

PATIENT
  Sex: Female
  Weight: 73 kg

DRUGS (10)
  1. REMICADE [Suspect]
     Indication: RHEUMATOID ARTHRITIS
     Route: 042
  2. DYAZIDE [Concomitant]
  3. IMIPRAMINE [Concomitant]
  4. LACTULOSE [Concomitant]
  5. VICODIN [Concomitant]
  6. LASIX [Concomitant]
  7. POTASSIUM SUPPLEMENT [Concomitant]
  8. SPIRONOLACTONE [Concomitant]
  9. RELAFEN [Concomitant]
  10. RITUXAN [Concomitant]

REACTIONS (3)
  - HEPATOTOXICITY [None]
  - PETECHIAE [None]
  - THROMBOCYTOPENIA [None]
